FAERS Safety Report 21466090 (Version 1)
Quarter: 2022Q4

REPORT INFORMATION
  Report Type: Other
  Country: SE (occurrence: None)
  Receive Date: 20221017
  Receipt Date: 20221017
  Transmission Date: 20230112
  Serious: Yes (Death)
  Sender: FDA-Public Use
  Company Number: SE-ROCHE-3199185

PATIENT

DRUGS (5)
  1. BEVACIZUMAB [Suspect]
     Active Substance: BEVACIZUMAB
     Indication: Colorectal cancer metastatic
     Dosage: FOR 8 WEEKS
     Route: 042
  2. OXALIPLATIN [Concomitant]
     Active Substance: OXALIPLATIN
     Indication: Colorectal cancer metastatic
     Dosage: ON DAY 1
     Route: 042
  3. FLUOROURACIL [Concomitant]
     Active Substance: FLUOROURACIL
     Indication: Colorectal cancer metastatic
     Dosage: ON DAY 1
     Route: 040
  4. FLUOROURACIL [Concomitant]
     Active Substance: FLUOROURACIL
     Dosage: OVER 46 H
  5. ARFOLITIXORIN [Concomitant]
     Active Substance: ARFOLITIXORIN
     Indication: Colorectal cancer metastatic
     Dosage: 60, 120, OR 240 MG/M2 ON DAY 1 AS TWO I.V. BOLUS INJECTIONS
     Route: 040

REACTIONS (1)
  - Intestinal perforation [Fatal]
